FAERS Safety Report 8066328-1 (Version None)
Quarter: 2012Q1

REPORT INFORMATION
  Report Type: 
  Country: None (occurrence: None)
  Receive Date: 20120124
  Receipt Date: 20120112
  Transmission Date: 20120608
  Serious: Yes (Hospitalization)
  Sender: FDA-Public Use
  Company Number: CA-ELI_LILLY_AND_COMPANY-CA201201004378

PATIENT
  Age: 81 Year
  Sex: Female

DRUGS (15)
  1. FORTEO [Suspect]
     Indication: OSTEOPOROSIS
     Dosage: 20 UG, QD
     Route: 058
     Dates: start: 20111127
  2. RAMIPRIL [Concomitant]
  3. ASPIRIN [Concomitant]
  4. VITAMIN D [Concomitant]
  5. ENBREL [Concomitant]
  6. ACTONEL [Concomitant]
  7. PREDNISONE TAB [Concomitant]
  8. OXYCONTIN [Concomitant]
  9. AMLODIPINE [Concomitant]
  10. NITRODERM [Concomitant]
  11. CITALOPRAM HYDROBROMIDE [Concomitant]
  12. CALCIUM [Concomitant]
  13. PANTOPRAZOLE [Concomitant]
  14. VITAMIN B12 NOS [Concomitant]
  15. IRON [Concomitant]

REACTIONS (3)
  - BONE PAIN [None]
  - MUSCLE SPASMS [None]
  - HOSPITALISATION [None]
